FAERS Safety Report 25221445 (Version 1)
Quarter: 2025Q2

REPORT INFORMATION
  Report Type: Spontaneous
  Country: US (occurrence: US)
  Receive Date: 20250421
  Receipt Date: 20250421
  Transmission Date: 20250717
  Serious: No
  Sender: SANOFI AVENTIS
  Company Number: US-SA-2025SA108809

PATIENT
  Age: 77 Year
  Sex: Female

DRUGS (6)
  1. DUPIXENT [Suspect]
     Active Substance: DUPILUMAB
     Indication: Dermatitis atopic
     Dosage: 300 MG, QOW
     Route: 058
     Dates: start: 2020
  2. PIMECROLIMUS [Concomitant]
     Active Substance: PIMECROLIMUS
  3. OPZELURA [Concomitant]
     Active Substance: RUXOLITINIB PHOSPHATE
  4. METRONIDAZOLE [Concomitant]
     Active Substance: METRONIDAZOLE
  5. MOMETASONE [Concomitant]
     Active Substance: MOMETASONE
  6. GABAPENTIN [Concomitant]
     Active Substance: GABAPENTIN

REACTIONS (2)
  - Pain [Unknown]
  - Dermatitis atopic [Unknown]
